FAERS Safety Report 5395819-7 (Version None)
Quarter: 2007Q3

REPORT INFORMATION
  Report Type: 
  Country: None (occurrence: None)
  Receive Date: 20070724
  Receipt Date: 20070712
  Transmission Date: 20080115
  Serious: Yes (Other)
  Sender: FDA-Public Use
  Company Number: US-PFIZER INC-2006142033

PATIENT
  Sex: Male
  Weight: 88.5 kg

DRUGS (2)
  1. CELEBREX [Suspect]
     Indication: BURSITIS
     Dosage: DAILY DOSE:200MG
  2. CELEBREX [Suspect]
     Indication: PAIN

REACTIONS (2)
  - CARDIOVASCULAR DISORDER [None]
  - CEREBROVASCULAR ACCIDENT [None]
